FAERS Safety Report 14248918 (Version 2)
Quarter: 2017Q4

REPORT INFORMATION
  Report Type: Report from Study
  Country: US (occurrence: US)
  Receive Date: 20171204
  Receipt Date: 20171222
  Transmission Date: 20180321
  Serious: Yes (Death)
  Sender: FDA-Public Use
  Company Number: US-BAUSCH-BL-2017-033127

PATIENT
  Age: 78 Year
  Sex: Female

DRUGS (1)
  1. XENAZINE [Suspect]
     Active Substance: TETRABENAZINE
     Indication: HUNTINGTON^S DISEASE
     Route: 048
     Dates: start: 20120111

REACTIONS (4)
  - Prescribed overdose [Unknown]
  - Cardiac disorder [Fatal]
  - Product use complaint [Unknown]
  - Movement disorder [Unknown]

NARRATIVE: CASE EVENT DATE: 20120111
